FAERS Safety Report 6833973-8 (Version None)
Quarter: 2010Q3

REPORT INFORMATION
  Report Type: 
  Country: None (occurrence: None)
  Receive Date: 20100712
  Receipt Date: 20070406
  Transmission Date: 20110219
  Serious: No
  Sender: FDA-Public Use
  Company Number: US-PFIZER INC-2007028160

PATIENT
  Sex: Female
  Weight: 56.7 kg

DRUGS (3)
  1. CHANTIX [Suspect]
     Indication: SMOKING CESSATION THERAPY
     Dates: start: 20070326
  2. FLUOXETINE HCL [Concomitant]
     Indication: DEPRESSION
  3. VITAMINS [Concomitant]

REACTIONS (6)
  - ABDOMINAL PAIN UPPER [None]
  - CHILLS [None]
  - FATIGUE [None]
  - FLATULENCE [None]
  - HEADACHE [None]
  - INFLUENZA LIKE ILLNESS [None]
